FAERS Safety Report 23737038 (Version 1)
Quarter: 2024Q2

REPORT INFORMATION
  Report Type: Report from Study
  Country: US (occurrence: None)
  Receive Date: 20240412
  Receipt Date: 20240412
  Transmission Date: 20240716
  Serious: Yes (Life-Threatening)
  Sender: FDA-Public Use
  Company Number: 2022A204584

PATIENT
  Sex: Male

DRUGS (1)
  1. TAGRISSO [Suspect]
     Active Substance: OSIMERTINIB
     Indication: Lung neoplasm malignant
     Route: 048
     Dates: start: 20220515

REACTIONS (4)
  - Renal impairment [Unknown]
  - Laboratory test abnormal [Unknown]
  - Diarrhoea [Recovered/Resolved]
  - Rash [Unknown]
